FAERS Safety Report 23839425 (Version 1)
Quarter: 2024Q2

REPORT INFORMATION
  Report Type: Spontaneous
  Country: US (occurrence: US)
  Receive Date: 20240510
  Receipt Date: 20240510
  Transmission Date: 20240716
  Serious: Yes (Hospitalization, Other)
  Sender: FDA-Public Use
  Company Number: US-AVET LIFESCIENCES LTD-2024-AVET-000159

PATIENT
  Age: 89 Year
  Sex: Female

DRUGS (17)
  1. VENLAFAXINE HYDROCHLORIDE [Interacting]
     Active Substance: VENLAFAXINE HYDROCHLORIDE
     Indication: Depression
     Dosage: 37.5 MILLIGRAM DAILY
  2. OXYCODONE [Interacting]
     Active Substance: OXYCODONE\OXYCODONE HYDROCHLORIDE
     Indication: Analgesic therapy
     Dosage: 5 MILLIGRAM AS NEEDED
  3. BUMETANIDE [Concomitant]
     Active Substance: BUMETANIDE
     Dosage: 2 MILLIGRAM, BID
  4. ASPIRIN [Concomitant]
     Active Substance: ASPIRIN
     Dosage: 81 MILLIGRAM DAILY
  5. ATORVASTATIN [Concomitant]
     Active Substance: ATORVASTATIN
     Dosage: 40 MILLIGRAM EVERY NIGHT
  6. CLOPIDOGREL [Concomitant]
     Active Substance: CLOPIDOGREL BISULFATE
     Dosage: 75 MILLIGRAM DAILY
  7. DOXAZOSIN [Concomitant]
     Active Substance: DOXAZOSIN MESYLATE
     Dosage: 1 MILLIGRAM DAILY
  8. NIFEDIPINE [Concomitant]
     Active Substance: NIFEDIPINE
     Dosage: 30 MILLIGRAM DAILY
  9. SPIRIVA [Concomitant]
     Active Substance: TIOTROPIUM BROMIDE MONOHYDRATE
     Dosage: 1 PUFF DAILY
  10. NOVOLOG [Concomitant]
     Active Substance: INSULIN ASPART
     Dosage: 7 UNITS, TID
  11. LANTUS [Concomitant]
     Active Substance: INSULIN GLARGINE
     Dosage: 17 UNITS DAILY
  12. ALBUTEROL\IPRATROPIUM [Concomitant]
     Active Substance: ALBUTEROL\IPRATROPIUM
     Dosage: 3 MILLILITER AS NEEDED
  13. ACETAMINOPHEN\HYDROCODONE [Concomitant]
     Active Substance: ACETAMINOPHEN\HYDROCODONE
     Dosage: 500 MILLIGRAM DAILY
  14. LOSARTAN [Concomitant]
     Active Substance: LOSARTAN
     Dosage: 50 MILLIGRAM, BID
  15. MEGESTROL [Concomitant]
     Active Substance: MEGESTROL
     Dosage: 40 MG/ML DAILY
  16. MEMANTINE [Concomitant]
     Active Substance: MEMANTINE
     Dosage: 10 MILLIGRAM EVERY NIGHT
  17. TRIAMCINOLONE [Concomitant]
     Active Substance: TRIAMCINOLONE
     Dosage: 0.10 PERCENT AS NEEDED
     Route: 061

REACTIONS (2)
  - Drug interaction [Unknown]
  - Serotonin syndrome [Recovering/Resolving]
